FAERS Safety Report 5017018-0 (Version None)
Quarter: 2006Q2

REPORT INFORMATION
  Report Type: 
  Country: None (occurrence: None)
  Receive Date: 20060526
  Receipt Date: 20060513
  Transmission Date: 20061013
  Serious: Yes (Hospitalization)
  Sender: FDA-Public Use
  Company Number: 2006S1000100

PATIENT
  Age: 59 Year
  Sex: Male
  Weight: 49.5 kg

DRUGS (14)
  1. CUBICIN [Suspect]
     Indication: STAPHYLOCOCCAL BACTERAEMIA
     Dosage: 500 MG;Q2H;IV
     Route: 042
     Dates: start: 20060101
  2. WARFARIN SODIUM [Concomitant]
  3. FUROSEMIDE [Concomitant]
  4. LORAZEPAM [Concomitant]
  5. ZOLOFT [Concomitant]
  6. TEMEAZEPAM [Concomitant]
  7. METOCLOPRAMIDE [Concomitant]
  8. ARICEPT [Concomitant]
  9. ALBUTEROL SULFATE AUTOHALER [Concomitant]
  10. LACTULOSE [Concomitant]
  11. LOTRIMIN [Concomitant]
  12. MYCELEX [Concomitant]
  13. CIPROFLOXACIN [Concomitant]
  14. FLUCONAZOLE [Concomitant]

REACTIONS (4)
  - ALANINE AMINOTRANSFERASE INCREASED [None]
  - CELLULITIS [None]
  - DECUBITUS ULCER [None]
  - INFECTED SKIN ULCER [None]
